FAERS Safety Report 21766570 (Version 2)
Quarter: 2023Q1

REPORT INFORMATION
  Report Type: Spontaneous
  Country: US (occurrence: US)
  Receive Date: 20221222
  Receipt Date: 20230106
  Transmission Date: 20230417
  Serious: Yes (Other)
  Sender: FDA-Public Use
  Company Number: US-TEVA-2022-US-2837380

PATIENT
  Age: 71 Year
  Sex: Female

DRUGS (3)
  1. CISPLATIN [Suspect]
     Active Substance: CISPLATIN
     Indication: Anal squamous cell carcinoma
     Route: 065
  2. FLUOROURACIL [Suspect]
     Active Substance: FLUOROURACIL
     Indication: Anal squamous cell carcinoma
     Route: 065
  3. NIVOLUMAB [Suspect]
     Active Substance: NIVOLUMAB
     Indication: Anal squamous cell carcinoma
     Dosage: ADDITIONAL INFO: ACTION TAKEN: ACTION TAKEN: UNKNOWN AT THE TIME OF ADR ONSET. HOWEVER, THE TREATMEN
     Route: 065

REACTIONS (2)
  - Therapy non-responder [Unknown]
  - Glomerulonephritis [Recovering/Resolving]
